FAERS Safety Report 25853230 (Version 1)
Quarter: 2025Q3

REPORT INFORMATION
  Report Type: Spontaneous
  Country: US (occurrence: US)
  Receive Date: 20250926
  Receipt Date: 20250926
  Transmission Date: 20251020
  Serious: No
  Sender: RIGEL PHARMACEUTICALS
  Company Number: US-RIGEL Pharmaceuticals, INC-20250700111

PATIENT
  Age: 79 Year
  Sex: Male

DRUGS (1)
  1. REZLIDHIA [Suspect]
     Active Substance: OLUTASIDENIB
     Indication: Acute myeloid leukaemia
     Dosage: 150 MG, BID
     Route: 048
     Dates: start: 20250620

REACTIONS (4)
  - Laboratory test abnormal [Not Recovered/Not Resolved]
  - Biopsy bone marrow [Unknown]
  - Transfusion [Unknown]
  - Blood product transfusion dependent [Unknown]

NARRATIVE: CASE EVENT DATE: 20250705
